FAERS Safety Report 6476820-9 (Version None)
Quarter: 2009Q4

REPORT INFORMATION
  Report Type: 
  Country: None (occurrence: None)
  Receive Date: 20091207
  Receipt Date: 20091201
  Transmission Date: 20100525
  Serious: Yes (Hospitalization)
  Sender: FDA-Public Use
  Company Number: IE-ROCHE-672235

PATIENT
  Weight: 63 kg

DRUGS (6)
  1. CAPECITABINE [Suspect]
     Indication: GASTRIC CANCER
     Dosage: DRUG INTERRUPTED, ROUTE REPORTED AS INFUSION AND TRANSFUSION.
     Route: 065
     Dates: start: 20091119, end: 20091127
  2. EPIRUBICIN [Suspect]
     Indication: GASTRIC CANCER
     Route: 042
     Dates: start: 20091119, end: 20091127
  3. CISPLATIN [Suspect]
     Indication: GASTRIC CANCER
     Dosage: DRUG INTERRUPTED, ROUTE REPORTED AS INFUSION AND TRANSFUSION.
     Route: 042
     Dates: start: 20091119, end: 20091127
  4. ENALAPRIL [Concomitant]
     Dosage: COMPOSITION REPORTED AS 20MG/125 MG.
     Route: 048
  5. OMEPRAZOLE [Concomitant]
     Route: 048
  6. SIMVASTIN [Concomitant]
     Route: 048

REACTIONS (3)
  - GENERAL PHYSICAL HEALTH DETERIORATION [None]
  - HYPERGLYCAEMIA [None]
  - HYPONATRAEMIA [None]
